FAERS Safety Report 6766657-5 (Version None)
Quarter: 2010Q2

REPORT INFORMATION
  Report Type: 
  Country: None (occurrence: None)
  Receive Date: 20100609
  Receipt Date: 20100531
  Transmission Date: 20101027
  Serious: Yes (Life-Threatening)
  Sender: FDA-Public Use
  Company Number: 2010AL003263

PATIENT
  Age: 71 Year
  Sex: Female

DRUGS (4)
  1. MIRTAZAPINE [Suspect]
     Indication: DEPRESSION
     Dosage: 15 MG; PO
     Route: 048
     Dates: end: 20100525
  2. ESCITALOPRAM [Concomitant]
  3. CENTYL [Concomitant]
  4. SEROQUEL [Concomitant]

REACTIONS (2)
  - BLOOD SODIUM DECREASED [None]
  - DRUG INTERACTION [None]
